FAERS Safety Report 24433941 (Version 2)
Quarter: 2024Q4

REPORT INFORMATION
  Report Type: Spontaneous
  Country: US (occurrence: US)
  Receive Date: 20241014
  Receipt Date: 20241028
  Transmission Date: 20250115
  Serious: Yes (Life-Threatening, Hospitalization)
  Sender: TEVA
  Company Number: US-TEVA-VS-3253041

PATIENT
  Age: 38 Year
  Sex: Male

DRUGS (8)
  1. ADENOSINE [Suspect]
     Active Substance: ADENOSINE
     Indication: Supraventricular tachycardia
     Route: 065
  2. ADENOSINE [Suspect]
     Active Substance: ADENOSINE
     Indication: Supraventricular tachycardia
     Route: 065
  3. ADENOSINE [Suspect]
     Active Substance: ADENOSINE
     Indication: Supraventricular tachycardia
     Route: 065
  4. ADENOSINE [Suspect]
     Active Substance: ADENOSINE
     Indication: Supraventricular tachycardia
     Dosage: INITIAL DOSAGE NOT STATED
     Route: 065
  5. PROCAINAMIDE HYDROCHLORIDE [Suspect]
     Active Substance: PROCAINAMIDE HYDROCHLORIDE
     Indication: Supraventricular tachycardia
     Route: 065
  6. METOPROLOL [Suspect]
     Active Substance: METOPROLOL
     Indication: Supraventricular tachycardia
     Route: 042
  7. AMIODARONE [Suspect]
     Active Substance: AMIODARONE
     Indication: Supraventricular tachycardia
     Route: 065
  8. AMIODARONE [Suspect]
     Active Substance: AMIODARONE
     Indication: Supraventricular tachycardia
     Route: 065

REACTIONS (1)
  - Drug ineffective [Unknown]
